FAERS Safety Report 19411257 (Version 2)
Quarter: 2021Q2

REPORT INFORMATION
  Report Type: Spontaneous
  Country: GR (occurrence: GR)
  Receive Date: 20210614
  Receipt Date: 20210630
  Transmission Date: 20210717
  Serious: Yes (Other)
  Sender: FDA-Public Use
  Company Number: GR-AMGEN-GRCSP2021088209

PATIENT
  Sex: Male

DRUGS (13)
  1. TRESIBA [Concomitant]
     Active Substance: INSULIN DEGLUDEC
  2. APIDRA [Concomitant]
     Active Substance: INSULIN GLULISINE
  3. NIFEDIPINE. [Concomitant]
     Active Substance: NIFEDIPINE
  4. PARICALCITOL. [Concomitant]
     Active Substance: PARICALCITOL
  5. CLONIDINE. [Concomitant]
     Active Substance: CLONIDINE
  6. MIMPARA [Suspect]
     Active Substance: CINACALCET HYDROCHLORIDE
     Indication: PRODUCT USED FOR UNKNOWN INDICATION
     Dosage: UNK
     Route: 065
  7. MAGNESIUM [Concomitant]
     Active Substance: MAGNESIUM
  8. ROSUVASTATIN. [Concomitant]
     Active Substance: ROSUVASTATIN
  9. FUROSEMIDE. [Concomitant]
     Active Substance: FUROSEMIDE
  10. OMEPRAZOLE. [Concomitant]
     Active Substance: OMEPRAZOLE
  11. ARANESP [Suspect]
     Active Substance: DARBEPOETIN ALFA
     Indication: PRODUCT USED FOR UNKNOWN INDICATION
     Dosage: UNK
     Route: 065
  12. IRBESARTAN. [Concomitant]
     Active Substance: IRBESARTAN
  13. SEVELAMER [Concomitant]
     Active Substance: SEVELAMER

REACTIONS (2)
  - Catheter site infection [Recovered/Resolved]
  - Peritonitis bacterial [Recovered/Resolved]

NARRATIVE: CASE EVENT DATE: 20201025
